FAERS Safety Report 8129453-2 (Version None)
Quarter: 2011Q4

REPORT INFORMATION
  Report Type: 
  Country: None (occurrence: None)
  Receive Date: 20111227
  Receipt Date: 20110902
  Transmission Date: 20120403
  Serious: No
  Sender: FDA-Public Use
  Company Number: PHEH2011US03270

PATIENT
  Age: 38 Year
  Sex: Female

DRUGS (7)
  1. GILENYA [Suspect]
     Dosage: 0.5 MG, QD, ORAL
     Route: 048
  2. MULTIVITAMINS (ASCORBIC ACID, ERGOCALCIFEROL, FOLIC ACID, NICOTINAMIDE [Concomitant]
  3. AMITRIPTYLINE HCL [Concomitant]
  4. SYNTHROID [Concomitant]
  5. VITAMIN D [Concomitant]
  6. CLONAZEPAM [Concomitant]
  7. ACETAMINOPHEN [Concomitant]

REACTIONS (6)
  - CHOKING [None]
  - NASOPHARYNGITIS [None]
  - PARAESTHESIA [None]
  - MUSCLE TWITCHING [None]
  - HYPOAESTHESIA [None]
  - DYSPHAGIA [None]
